FAERS Safety Report 5694011-6 (Version None)
Quarter: 2008Q2

REPORT INFORMATION
  Report Type: 
  Country: None (occurrence: None)
  Receive Date: 20080403
  Receipt Date: 20080327
  Transmission Date: 20081010
  Serious: Yes (Hospitalization)
  Sender: FDA-Public Use
  Company Number: SE-ABBOTT-08P-150-0444481-00

PATIENT
  Age: 84 Year
  Sex: Male

DRUGS (18)
  1. ZEMPLAR [Suspect]
     Indication: DRUG USE FOR UNKNOWN INDICATION
     Dates: end: 20080228
  2. ZEMPLAR [Suspect]
     Dates: start: 20080228, end: 20080313
  3. HEPARIN-FRACTION, SODIUM SALT [Concomitant]
     Indication: DRUG USE FOR UNKNOWN INDICATION
     Route: 050
  4. EPOETIN BETA [Concomitant]
     Indication: DRUG USE FOR UNKNOWN INDICATION
     Route: 050
  5. SACCHARATED IRON OXIDE [Concomitant]
     Indication: DRUG USE FOR UNKNOWN INDICATION
     Route: 050
  6. DIAZEPAM [Concomitant]
     Indication: MUSCLE SPASMS
     Route: 050
  7. PARENTROVITE [Concomitant]
     Indication: DRUG USE FOR UNKNOWN INDICATION
     Route: 048
  8. FOLACIN [Concomitant]
     Indication: DRUG USE FOR UNKNOWN INDICATION
     Route: 048
  9. METOPROLOL SUCCINATE [Concomitant]
     Indication: DRUG USE FOR UNKNOWN INDICATION
     Route: 048
  10. LEVOTHYROXINE SODIUM [Concomitant]
     Indication: DRUG USE FOR UNKNOWN INDICATION
     Route: 048
  11. CINACALCET [Concomitant]
     Indication: DRUG USE FOR UNKNOWN INDICATION
     Route: 048
  12. MIMPERA [Concomitant]
     Indication: DRUG USE FOR UNKNOWN INDICATION
     Route: 048
  13. SEVELAMER [Concomitant]
     Indication: DRUG USE FOR UNKNOWN INDICATION
     Route: 048
  14. ZOPICLONE [Concomitant]
     Indication: DRUG USE FOR UNKNOWN INDICATION
     Route: 048
  15. NAPROXEN SODIUM [Concomitant]
     Indication: NAUSEA
     Route: 048
  16. ACETAMINOPHEN [Concomitant]
     Indication: DRUG USE FOR UNKNOWN INDICATION
     Route: 048
  17. DIAZEPAM [Concomitant]
     Route: 048
  18. HYDROXYZINE [Concomitant]
     Indication: DRUG USE FOR UNKNOWN INDICATION
     Route: 048

REACTIONS (10)
  - ABNORMAL BEHAVIOUR [None]
  - ACIDOSIS [None]
  - BLOOD PARATHYROID HORMONE INCREASED [None]
  - BLOOD THYROID STIMULATING HORMONE INCREASED [None]
  - CONFUSIONAL STATE [None]
  - DISORIENTATION [None]
  - HYPERCALCAEMIA [None]
  - INAPPROPRIATE SCHEDULE OF DRUG ADMINISTRATION [None]
  - MENTAL IMPAIRMENT [None]
  - SERUM FERRITIN INCREASED [None]
